FAERS Safety Report 15384061 (Version 1)
Quarter: 2018Q3

REPORT INFORMATION
  Report Type: Spontaneous
  Country: FR (occurrence: FR)
  Receive Date: 20180914
  Receipt Date: 20180914
  Transmission Date: 20181010
  Serious: Yes (Other)
  Sender: FDA-Public Use
  Company Number: FR-TEVA-2018-FR-954357

PATIENT
  Age: 66 Year
  Sex: Female

DRUGS (1)
  1. AMOXICILLIN. [Suspect]
     Active Substance: AMOXICILLIN
     Indication: URINARY TRACT INFECTION
     Route: 048
     Dates: start: 2009, end: 2009

REACTIONS (2)
  - Erythema [Recovered/Resolved]
  - Face oedema [Recovered/Resolved]

NARRATIVE: CASE EVENT DATE: 2009
